FAERS Safety Report 13717360 (Version 1)
Quarter: 2017Q3

REPORT INFORMATION
  Report Type: Spontaneous
  Country: FR (occurrence: FR)
  Receive Date: 20170705
  Receipt Date: 20170705
  Transmission Date: 20171127
  Serious: Yes (Hospitalization, Other)
  Sender: FDA-Public Use
  Company Number: FR-ACTELION-A-CH2017-155858

PATIENT
  Age: 59 Year
  Sex: Female

DRUGS (4)
  1. INEXIUM [Concomitant]
     Active Substance: ESOMEPRAZOLE
     Dosage: 30 MG, UNK
  2. CELLCEPT [Concomitant]
     Active Substance: MYCOPHENOLATE MOFETIL\MYCOPHENOLATE MOFETIL HYDROCHLORIDE
     Dosage: 1000 MG, BID
  3. SOMATOLINE [Concomitant]
     Active Substance: ESCIN\LEVOTHYROXINE
     Dosage: 120 MG, Q1MONTH
  4. TRACLEER [Suspect]
     Active Substance: BOSENTAN
     Indication: PULMONARY ARTERIAL HYPERTENSION
     Dosage: 125 MG, BID
     Route: 048
     Dates: start: 201612, end: 20170425

REACTIONS (10)
  - Condition aggravated [Recovered/Resolved]
  - Explorative laparotomy [Unknown]
  - Inflammation [Unknown]
  - Intestinal pseudo-obstruction [Recovered/Resolved]
  - C-reactive protein increased [Unknown]
  - Gastrostomy [Unknown]
  - Vomiting [Recovered/Resolved]
  - Intestinal obstruction [Recovered/Resolved]
  - Pyrexia [Unknown]
  - Nausea [Recovered/Resolved]

NARRATIVE: CASE EVENT DATE: 20170424
